FAERS Safety Report 10222841 (Version 3)
Quarter: 2020Q2

REPORT INFORMATION
  Report Type: Report from Study
  Country: NO (occurrence: NO)
  Receive Date: 20140606
  Receipt Date: 20200520
  Transmission Date: 20200713
  Serious: Yes (Life-Threatening, Hospitalization, Other)
  Sender: FDA-Public Use
  Company Number: NO-CELGENEUS-122-21880-14034859

PATIENT
  Age: 70 Year
  Sex: Female
  Weight: 111 kg

DRUGS (12)
  1. CYKLOKAPRON [Concomitant]
     Active Substance: TRANEXAMIC ACID
     Indication: PROPHYLAXIS
     Dosage: 1 GRAM
     Route: 048
     Dates: start: 20140321
  2. REVLIMID [Suspect]
     Active Substance: LENALIDOMIDE
     Dosage: 7.5 MILLIGRAM
     Route: 048
     Dates: start: 20140407
  3. TAZOCIN [Concomitant]
     Active Substance: PIPERACILLIN SODIUM\TAZOBACTAM SODIUM
     Indication: PYREXIA
     Route: 041
     Dates: start: 20140324, end: 20140327
  4. FRAGMIN [Concomitant]
     Active Substance: DALTEPARIN SODIUM
     Indication: PROPHYLAXIS
     Dosage: 5000 IU (INTERNATIONAL UNIT)
     Route: 058
     Dates: start: 20140304, end: 20140311
  5. RED BLOOD CELLS [Concomitant]
     Active Substance: HUMAN RED BLOOD CELL
     Indication: PRODUCT USED FOR UNKNOWN INDICATION
     Route: 065
  6. VIDAZA [Suspect]
     Active Substance: AZACITIDINE
     Indication: REFRACTORY ANAEMIA WITH AN EXCESS OF BLASTS
     Dosage: 18.75 MILLIGRAM
     Route: 065
     Dates: start: 20140303, end: 20140323
  7. VIDAZA [Suspect]
     Active Substance: AZACITIDINE
     Dosage: 18.75 MILLIGRAM
     Route: 065
     Dates: start: 20140407
  8. PLATELETS [Concomitant]
     Active Substance: HUMAN PLATELET, ALLOGENIC
     Indication: PRODUCT USED FOR UNKNOWN INDICATION
     Route: 065
  9. REVLIMID [Suspect]
     Active Substance: LENALIDOMIDE
     Indication: REFRACTORY ANAEMIA WITH AN EXCESS OF BLASTS
     Dosage: 7.5 MILLIGRAM
     Route: 048
     Dates: start: 20140303, end: 20140323
  10. ATENOLOL. [Concomitant]
     Active Substance: ATENOLOL
     Indication: ATRIAL FLUTTER
     Dosage: 100 MILLIGRAM
     Route: 065
     Dates: start: 201402
  11. ONDANSETRON [Concomitant]
     Active Substance: ONDANSETRON
     Indication: PROPHYLAXIS
     Dosage: 16 MILLIGRAM
     Route: 065
     Dates: start: 20140303, end: 20140312
  12. BURINEX [Concomitant]
     Active Substance: BUMETANIDE
     Indication: FLUID OVERLOAD
     Dosage: 2 MILLIGRAM
     Route: 048
     Dates: start: 201402

REACTIONS (5)
  - Neutropenia [Recovered/Resolved]
  - Thrombocytopenia [Recovered/Resolved]
  - Anaemia [Recovered/Resolved]
  - Thrombocytopenia [Not Recovered/Not Resolved]
  - Febrile neutropenia [Recovered/Resolved]

NARRATIVE: CASE EVENT DATE: 20140317
